FAERS Safety Report 9270038 (Version 1)
Quarter: 2013Q2

REPORT INFORMATION
  Report Type: Spontaneous
  Country: US (occurrence: US)
  Receive Date: 20130503
  Receipt Date: 20130503
  Transmission Date: 20140414
  Serious: Yes (Hospitalization, Other)
  Sender: FDA-Public Use
  Company Number: US-ELI_LILLY_AND_COMPANY-US201303007780

PATIENT
  Sex: Female

DRUGS (1)
  1. HUMATROPE [Suspect]
     Dosage: 0.4 MG, UNK
     Route: 058

REACTIONS (3)
  - Breast cancer stage I [Recovered/Resolved]
  - Cerebrovascular accident [Unknown]
  - Memory impairment [Not Recovered/Not Resolved]
